FAERS Safety Report 9365663 (Version 1)
Quarter: 2013Q2

REPORT INFORMATION
  Report Type: Spontaneous
  Country: US (occurrence: None)
  Receive Date: 20130624
  Receipt Date: 20130624
  Transmission Date: 20140414
  Serious: No
  Sender: FDA-Public Use
  Company Number: None

PATIENT
  Sex: Female

DRUGS (2)
  1. GLEEVEC, 100 MG, NOVARTIS [Suspect]
     Route: 048
  2. GLEEVEC, 100 MG, NOVARTIS [Suspect]
     Route: 048

REACTIONS (1)
  - Anaemia [None]
